FAERS Safety Report 18033791 (Version 1)
Quarter: 2020Q3

REPORT INFORMATION
  Report Type: Spontaneous
  Country: CL (occurrence: CL)
  Receive Date: 20200716
  Receipt Date: 20200716
  Transmission Date: 20201103
  Serious: Yes (Hospitalization, Other)
  Sender: FDA-Public Use
  Company Number: CL-COLLEGIUM PHARMACEUTICAL, INC.-CL-2020COL000511

PATIENT
  Age: 57 Year
  Sex: Female

DRUGS (5)
  1. LIDOCAINE. [Concomitant]
     Active Substance: LIDOCAINE
     Indication: DEBRIDEMENT
     Dosage: HALF AN AMPOULE
  2. OXYGEN. [Concomitant]
     Active Substance: OXYGEN
     Indication: PRODUCT USED FOR UNKNOWN INDICATION
     Dosage: UNK
  3. TRAMADOL HYDROCHLORIDE. [Concomitant]
     Active Substance: TRAMADOL HYDROCHLORIDE
     Indication: PRODUCT USED FOR UNKNOWN INDICATION
     Dosage: 50 MG, EVERY 8 HRS
  4. LIDOCAINE. [Concomitant]
     Active Substance: LIDOCAINE
     Indication: WOUND TREATMENT
  5. TAPENTADOL [Suspect]
     Active Substance: TAPENTADOL
     Indication: PAIN
     Dosage: 50 MG, QID
     Route: 048

REACTIONS (2)
  - Toxicity to various agents [Unknown]
  - Respiratory depression [Unknown]
